FAERS Safety Report 15153448 (Version 1)
Quarter: 2018Q3

REPORT INFORMATION
  Report Type: Spontaneous
  Country: US (occurrence: US)
  Receive Date: 20180717
  Receipt Date: 20180717
  Transmission Date: 20181010
  Serious: No
  Sender: FDA-Public Use
  Company Number: US-ELI_LILLY_AND_COMPANY-US201807007488

PATIENT
  Sex: Female

DRUGS (4)
  1. ALPRAZOLAM SANDOZ [Concomitant]
     Active Substance: ALPRAZOLAM
     Dosage: 2 DF, DAILY
     Route: 065
  2. ALPRAZOLAM SANDOZ [Concomitant]
     Active Substance: ALPRAZOLAM
     Indication: ANXIETY
     Dosage: 5 DF, DAILY
     Route: 065
  3. PROZAC [Suspect]
     Active Substance: FLUOXETINE HYDROCHLORIDE
     Indication: ANXIETY
     Dosage: UNK, UNKNOWN
     Route: 065
  4. ALPRAZOLAM SANDOZ [Concomitant]
     Active Substance: ALPRAZOLAM
     Dosage: 8 DF, DAILY
     Route: 065

REACTIONS (2)
  - Dehydration [Unknown]
  - Eating disorder [Unknown]
